FAERS Safety Report 6145695-X (Version None)
Quarter: 2009Q2

REPORT INFORMATION
  Report Type: 
  Country: None (occurrence: None)
  Receive Date: 20090407
  Receipt Date: 20090402
  Transmission Date: 20091009
  Serious: Yes (Other)
  Sender: FDA-Public Use
  Company Number: FR-WYE-G03443809

PATIENT
  Age: 50 Year
  Sex: Female

DRUGS (2)
  1. ADVIL [Suspect]
     Indication: PAIN IN EXTREMITY
     Dosage: UNKNOWN
     Route: 048
     Dates: start: 20090328, end: 20090401
  2. DAKIN COOPER [Concomitant]
     Indication: PARONYCHIA
     Dosage: UNKNOWN
     Route: 061
     Dates: start: 20090331

REACTIONS (2)
  - CONDITION AGGRAVATED [None]
  - PARONYCHIA [None]
